FAERS Safety Report 7216998-2 (Version None)
Quarter: 2011Q1

REPORT INFORMATION
  Report Type: 
  Country: None (occurrence: None)
  Receive Date: 20110110
  Receipt Date: 20101012
  Transmission Date: 20110831
  Serious: No
  Sender: FDA-Public Use
  Company Number: A0886134A

PATIENT
  Age: 57 Year
  Sex: Male

DRUGS (8)
  1. HYDROCODONE BITARTRATE + ACETAMINOPHEN [Concomitant]
  2. ALLOPURINOL [Concomitant]
  3. SYNTHROID [Concomitant]
  4. REQUIP XL [Suspect]
     Indication: PARKINSON'S DISEASE
     Dosage: 36MG PER DAY
     Route: 048
     Dates: start: 20100601
  5. UNSPECIFIED MEDICATION [Concomitant]
  6. PROPOXYPHENE HCL AND ACETAMINOPHEN [Concomitant]
  7. CARBIDOPA AND LEVODOPA [Concomitant]
  8. PAIN MEDICATION [Concomitant]

REACTIONS (3)
  - VOMITING [None]
  - NAUSEA [None]
  - INITIAL INSOMNIA [None]
